FAERS Safety Report 5621477-X (Version None)
Quarter: 2008Q1

REPORT INFORMATION
  Report Type: 
  Country: None (occurrence: None)
  Receive Date: 20080206
  Receipt Date: 20080121
  Transmission Date: 20080703
  Serious: Yes (Other)
  Sender: FDA-Public Use
  Company Number: 230002E08USA

PATIENT
  Age: 44 Year
  Sex: Female
  Weight: 72 kg

DRUGS (6)
  1. REBIF [Suspect]
     Indication: RELAPSING-REMITTING MULTIPLE SCLEROSIS
     Dosage: 44 MCG, 3 IN 1 WEEKS, SUBCUTANEOUS
     Route: 058
     Dates: start: 20070702, end: 20071209
  2. HYDROCHLOROTHIAZIDE [Concomitant]
  3. TRAZODONE HCL [Concomitant]
  4. NAPROXEN SODIUM [Concomitant]
  5. COTYLENOL [Concomitant]
  6. SIMVASTATIN [Concomitant]

REACTIONS (3)
  - CHOLECYSTITIS [None]
  - CHRONIC HEPATITIS [None]
  - SERUM FERRITIN INCREASED [None]
